FAERS Safety Report 7686049-4 (Version None)
Quarter: 2011Q3

REPORT INFORMATION
  Report Type: 
  Country: None (occurrence: None)
  Receive Date: 20110816
  Receipt Date: 20110804
  Transmission Date: 20111222
  Serious: Yes (Hospitalization, Other)
  Sender: FDA-Public Use
  Company Number: PHHY2009GB33540

PATIENT
  Sex: Female

DRUGS (3)
  1. CLOZAPINE [Suspect]
     Route: 048
     Dates: start: 20091016
  2. RISPERIDONE [Concomitant]
     Dosage: 75 MG, BIW
  3. CLOZAPINE [Suspect]
     Indication: SCHIZOPHRENIA
     Route: 048
     Dates: start: 20081023

REACTIONS (9)
  - SCHIZOPHRENIA [None]
  - ALANINE AMINOTRANSFERASE INCREASED [None]
  - HEPATITIS C [None]
  - BLOOD GLUCOSE INCREASED [None]
  - MENTAL IMPAIRMENT [None]
  - THINKING ABNORMAL [None]
  - LIVER FUNCTION TEST ABNORMAL [None]
  - GLYCOSYLATED HAEMOGLOBIN INCREASED [None]
  - NEUTROPHIL COUNT DECREASED [None]
